FAERS Safety Report 9999803 (Version 1)
Quarter: 2014Q1

REPORT INFORMATION
  Report Type: Spontaneous
  Country: FR (occurrence: FR)
  Receive Date: 20140312
  Receipt Date: 20140312
  Transmission Date: 20141002
  Serious: Yes (Hospitalization)
  Sender: FDA-Public Use
  Company Number: FR-009507513-1403FRA003392

PATIENT
  Age: 65 Year
  Sex: Female

DRUGS (5)
  1. TIENAM 500MG/500MG, POUDRE POUR PERFUSION [Suspect]
     Indication: BRAIN ABSCESS
     Dosage: UNK
     Route: 042
     Dates: start: 20140220
  2. VANCOMYCIN [Suspect]
     Indication: BRAIN ABSCESS
     Dosage: UNK
     Route: 042
     Dates: start: 20140213, end: 20140226
  3. CUBICIN [Suspect]
     Indication: BRAIN ABSCESS
     Dosage: UNK
     Route: 042
     Dates: start: 20140227
  4. KEPPRA [Suspect]
     Dosage: UNK
     Route: 065
     Dates: start: 20140213, end: 20140226
  5. INEXIUM [Suspect]
     Dosage: UNK
     Route: 065
     Dates: start: 20140214

REACTIONS (1)
  - Cell death [Not Recovered/Not Resolved]
